FAERS Safety Report 5750466-X (Version None)
Quarter: 2008Q2

REPORT INFORMATION
  Report Type: 
  Country: None (occurrence: None)
  Receive Date: 20080528
  Receipt Date: 20080114
  Transmission Date: 20081010
  Serious: No
  Sender: FDA-Public Use
  Company Number: US-KINGPHARMUSA00001-K200800055

PATIENT

DRUGS (2)
  1. AVINZA [Suspect]
  2. METHADONE HCL [Suspect]

REACTIONS (1)
  - DRUG WITHDRAWAL SYNDROME [None]
